FAERS Safety Report 6115562-6 (Version None)
Quarter: 2009Q1

REPORT INFORMATION
  Report Type: 
  Country: None (occurrence: None)
  Receive Date: 20090313
  Receipt Date: 20090226
  Transmission Date: 20090719
  Serious: Yes (Hospitalization)
  Sender: FDA-Public Use
  Company Number: PHHY2009AU08019

PATIENT
  Age: 84 Year
  Sex: Male

DRUGS (1)
  1. AREDIA [Suspect]

REACTIONS (9)
  - HEADACHE [None]
  - JOINT SWELLING [None]
  - MYALGIA [None]
  - NAUSEA [None]
  - OCULAR HYPERAEMIA [None]
  - OEDEMA PERIPHERAL [None]
  - SCLERAL OEDEMA [None]
  - UVEITIS [None]
  - VOMITING [None]
